FAERS Safety Report 25476870 (Version 1)
Quarter: 2025Q2

REPORT INFORMATION
  Report Type: Spontaneous
  Country: US (occurrence: US)
  Receive Date: 20250625
  Receipt Date: 20250625
  Transmission Date: 20250717
  Serious: No
  Sender: KVK-TECH
  Company Number: US-KVK-TECH, INC-20250300035

PATIENT
  Sex: Female

DRUGS (6)
  1. ACETAMINOPHEN\HYDROCODONE BITARTRATE [Suspect]
     Active Substance: ACETAMINOPHEN\HYDROCODONE BITARTRATE
     Indication: Product used for unknown indication
     Route: 065
     Dates: start: 202412
  2. LEVOTHYROXINE [Concomitant]
     Active Substance: LEVOTHYROXINE
     Indication: Thyroid disorder
  3. METHOTREXATE [Concomitant]
     Active Substance: METHOTREXATE
     Indication: Gastrointestinal disorder
  4. PREGABALIN [Concomitant]
     Active Substance: PREGABALIN
     Indication: Nervous system disorder
  5. INSULIN NOS [Concomitant]
     Active Substance: INSULIN NOS
  6. MOUNJARO [Concomitant]
     Active Substance: TIRZEPATIDE
     Indication: Product used for unknown indication

REACTIONS (6)
  - Feeling abnormal [Recovered/Resolved]
  - Gastrointestinal inflammation [Recovered/Resolved]
  - Nausea [Recovered/Resolved]
  - Obstructive airways disorder [Recovered/Resolved]
  - Dyspnoea [Recovered/Resolved]
  - Product quality issue [Unknown]
